FAERS Safety Report 8090621 (Version 2)
Quarter: 2014Q2

REPORT INFORMATION
  Report Type: Spontaneous
  Country: JP (occurrence: None)
  Receive Date: 20110808
  Receipt Date: 20140513
  Transmission Date: 20141212
  Serious: Yes (Hospitalization)
  Sender: FDA-Public Use
  Company Number: 2009JP007484

PATIENT
  Age: 57 Year
  Sex: Female
  Weight: 48 kg

DRUGS (13)
  1. PROGRAF [Suspect]
     Indication: LUPUS NEPHRITIS
     Dosage: 2 MG, UNKNOWN/D, ORAL; 2.5 MG, UNKNOWN/D, ORAL
     Route: 048
     Dates: start: 20070724, end: 20100510
  2. PREDNISOLONE [Concomitant]
  3. AMLODIPINE BESYLATE [Concomitant]
  4. LOSARTAN POTASSIUM [Concomitant]
  5. GASTER D (FAMOTIDINE) ORODISPERSIBLE CR [Concomitant]
  6. FOSAMAX [Concomitant]
  7. COMELIAN (DILAZEP DIHYDROCHLORIDE) [Concomitant]
  8. CRAVIT (LEVOFLOXACIN HYDRATE) [Concomitant]
  9. ROCEPHIN (CEFTRIAXONE SODIUM HYDRATE) [Concomitant]
  10. ZOYSN (TAZOBACTAM SODIUM_PIPERACILLINN SODIUM) [Concomitant]
  11. BANAN (CEFPODOXIME PROXETIL) [Concomitant]
  12. ISODINE (POVIDONE-IODINE) [Concomitant]
  13. METHYLPREDNISOLONE SODIUM SUCCINATE (METHYLPREDNISOLONE) [Concomitant]

REACTIONS (6)
  - Pyelonephritis acute [None]
  - Cystitis [None]
  - Nephrolithiasis [None]
  - Escherichia infection [None]
  - Lupus nephritis [None]
  - Condition aggravated [None]
